FAERS Safety Report 7586139-0 (Version None)
Quarter: 2011Q3

REPORT INFORMATION
  Report Type: 
  Country: None (occurrence: None)
  Receive Date: 20110701
  Receipt Date: 20110404
  Transmission Date: 20111222
  Serious: Yes (Other)
  Sender: FDA-Public Use
  Company Number: CH-BAYER-2011-028792

PATIENT
  Sex: Female
  Weight: 55 kg

DRUGS (2)
  1. NEXAVAR [Suspect]
     Indication: GASTROINTESTINAL STROMAL TUMOUR
     Dosage: UNK
     Route: 048
     Dates: start: 20101129
  2. BONIVA [Concomitant]

REACTIONS (7)
  - DIARRHOEA [None]
  - HYPOKALAEMIA [None]
  - HYPOCALCAEMIA [None]
  - HYPOMAGNESAEMIA [None]
  - WEIGHT DECREASED [None]
  - NAUSEA [None]
  - VOMITING [None]
